FAERS Safety Report 22673263 (Version 7)
Quarter: 2024Q1

REPORT INFORMATION
  Report Type: Spontaneous
  Country: CZ (occurrence: CZ)
  Receive Date: 20230705
  Receipt Date: 20240322
  Transmission Date: 20240409
  Serious: Yes (Life-Threatening, Hospitalization, Other)
  Sender: FDA-Public Use
  Company Number: CZ-MYLANLABS-2023M1070757

PATIENT
  Age: 58 Year
  Sex: Male

DRUGS (28)
  1. AZACITIDINE [Suspect]
     Active Substance: AZACITIDINE
     Indication: Acute myeloid leukaemia
     Dosage: UNK (FIRST CYCLE)
     Route: 065
     Dates: start: 202206
  2. AZACITIDINE [Suspect]
     Active Substance: AZACITIDINE
     Dosage: UNK (SECOND CYCLE)
     Route: 065
     Dates: start: 20220709
  3. AZACITIDINE [Suspect]
     Active Substance: AZACITIDINE
     Dosage: UNK (THIRD CYCLE)
     Route: 065
     Dates: start: 20220902
  4. AZACITIDINE [Suspect]
     Active Substance: AZACITIDINE
     Dosage: UNK (FOURTH CYCLE)
     Route: 065
  5. AZACITIDINE [Suspect]
     Active Substance: AZACITIDINE
     Dosage: UNK (FIFTH CYCLE)
     Route: 065
     Dates: start: 20221116
  6. VANCOMYCIN [Suspect]
     Active Substance: VANCOMYCIN
     Indication: Febrile neutropenia
     Dosage: UNK
     Route: 065
     Dates: start: 20220709, end: 20220719
  7. VANCOMYCIN [Suspect]
     Active Substance: VANCOMYCIN
     Indication: Acute myeloid leukaemia
  8. LINEZOLID [Suspect]
     Active Substance: LINEZOLID
     Indication: Febrile neutropenia
     Dosage: UNK
     Route: 065
     Dates: start: 20220727
  9. VORICONAZOLE [Suspect]
     Active Substance: VORICONAZOLE
     Indication: Fungal infection
     Dosage: UNK
     Route: 065
     Dates: start: 202206, end: 20220731
  10. AVIBACTAM SODIUM\CEFTAZIDIME [Suspect]
     Active Substance: AVIBACTAM SODIUM\CEFTAZIDIME
     Indication: Febrile neutropenia
     Dosage: UNK
     Route: 065
     Dates: start: 20220709, end: 20220719
  11. AVIBACTAM SODIUM\CEFTAZIDIME [Suspect]
     Active Substance: AVIBACTAM SODIUM\CEFTAZIDIME
     Dosage: UNK
     Route: 065
     Dates: start: 20220727
  12. MEROPENEM [Suspect]
     Active Substance: MEROPENEM
     Indication: Febrile neutropenia
     Dosage: UNK
     Route: 065
     Dates: start: 20220724, end: 20220727
  13. POSACONAZOLE [Suspect]
     Active Substance: POSACONAZOLE
     Indication: Product used for unknown indication
     Dosage: UNK
     Route: 065
     Dates: start: 20220731
  14. VENETOCLAX [Suspect]
     Active Substance: VENETOCLAX
     Indication: Acute myeloid leukaemia
     Dosage: UNK (FIRST CYCLE)
     Route: 065
     Dates: start: 202206
  15. VENETOCLAX [Suspect]
     Active Substance: VENETOCLAX
     Indication: Febrile neutropenia
     Dosage: UNK (SECOND CYCLE)
     Route: 065
     Dates: start: 20220709
  16. VENETOCLAX [Suspect]
     Active Substance: VENETOCLAX
     Dosage: UNK (THIRD CYCLE)
     Route: 065
     Dates: start: 20220902
  17. VENETOCLAX [Suspect]
     Active Substance: VENETOCLAX
     Dosage: UNK (FOURTH CYCLE)
     Route: 065
  18. VENETOCLAX [Suspect]
     Active Substance: VENETOCLAX
     Dosage: UNK (FIFTH CYCLE)
     Route: 065
     Dates: start: 20221116
  19. FILGRASTIM [Suspect]
     Active Substance: FILGRASTIM
     Indication: Neutropenia
     Dosage: UNK
     Route: 065
     Dates: start: 202208
  20. FOSFOMYCIN [Concomitant]
     Active Substance: FOSFOMYCIN
     Indication: Febrile neutropenia
     Dosage: UNK
     Route: 065
     Dates: start: 2022, end: 20220709
  21. AMIKACIN [Concomitant]
     Active Substance: AMIKACIN
     Indication: Febrile neutropenia
     Dosage: UNK
     Route: 065
     Dates: start: 2022, end: 20220709
  22. NYSTATIN [Concomitant]
     Active Substance: NYSTATIN
     Indication: Febrile neutropenia
     Dosage: UNK START DATE 24-JUL-2022 00:00
     Route: 065
     Dates: end: 2022
  23. AMPHOTERICIN B [Concomitant]
     Active Substance: AMPHOTERICIN B
     Indication: Bronchopulmonary aspergillosis
     Dosage: UNK
     Route: 065
     Dates: start: 20220804, end: 20220831
  24. AMPHOTERICIN B [Concomitant]
     Active Substance: AMPHOTERICIN B
     Indication: Decreased appetite
  25. AMPHOTERICIN B [Concomitant]
     Active Substance: AMPHOTERICIN B
     Indication: Asthenia
  26. AMPHOTERICIN B [Concomitant]
     Active Substance: AMPHOTERICIN B
     Indication: Weight decreased
  27. POTASSIUM [Concomitant]
     Active Substance: POTASSIUM
     Indication: Blood potassium decreased
     Dosage: UNK
     Route: 065
     Dates: start: 202208
  28. ISAVUCONAZOLE [Concomitant]
     Active Substance: ISAVUCONAZOLE
     Indication: Bronchopulmonary aspergillosis
     Dosage: UNK
     Route: 065
     Dates: start: 20220818

REACTIONS (12)
  - Pancytopenia [Recovered/Resolved]
  - Febrile neutropenia [Recovered/Resolved]
  - Pneumonia fungal [Recovered/Resolved]
  - Thrombocytopenia [Recovered/Resolved]
  - C-reactive protein increased [Unknown]
  - Mucosal disorder [Unknown]
  - Pulmonary resection [Unknown]
  - Fungal infection [Unknown]
  - Rash [Unknown]
  - Peripheral swelling [Unknown]
  - Therapeutic product effect incomplete [Recovered/Resolved]
  - Drug ineffective [Recovered/Resolved]

NARRATIVE: CASE EVENT DATE: 20220601
